FAERS Safety Report 7902115-X (Version None)
Quarter: 2011Q4

REPORT INFORMATION
  Report Type: 
  Country: None (occurrence: None)
  Receive Date: 20111108
  Receipt Date: 20111027
  Transmission Date: 20120403
  Serious: Yes (Hospitalization)
  Sender: FDA-Public Use
  Company Number: US-BAYER-2011-030130

PATIENT
  Age: 30 Year
  Sex: Female
  Weight: 59 kg

DRUGS (12)
  1. DIFLUCAN [Concomitant]
     Dosage: 150 MG, UNK
     Dates: start: 20091214
  2. LEXAPRO [Concomitant]
     Indication: DEPRESSION
     Dosage: UNK
     Dates: start: 20050101
  3. DOXYCYCLINE [Concomitant]
     Dosage: 100 MG, UNK
     Dates: start: 20091218
  4. YAZ [Suspect]
     Indication: PREMENSTRUAL SYNDROME
  5. METRONIDAZOLE [Concomitant]
     Dosage: 500 MG, UNK
     Dates: start: 20091214
  6. FLAGYL [Concomitant]
     Dosage: 500 MG, UNK
     Dates: start: 20091214
  7. YAZ [Suspect]
     Indication: ACNE
     Dosage: UNK
     Dates: start: 20091201, end: 20100101
  8. MAXALT-MLT [Concomitant]
     Dosage: 10 MG, UNK
     Dates: start: 20091028
  9. TAMIFLU [Concomitant]
     Dosage: 75 MG, UNK
     Dates: start: 20091117
  10. NYSTATIN W/TRIAMCINOLONE [NYSTATIN,TRIAMCINOLONE ACETONIDE] [Concomitant]
     Dosage: UNK
     Dates: start: 20091214
  11. NSAID'S [Concomitant]
     Indication: PAIN
     Dosage: +#8220;AS NEEDED+#8221;
  12. FLUCONAZOLE [Concomitant]
     Dosage: 150 MG, UNK
     Dates: start: 20091214

REACTIONS (2)
  - PAIN [None]
  - PULMONARY EMBOLISM [None]
